FAERS Safety Report 9697545 (Version 1)
Quarter: 2013Q4

REPORT INFORMATION
  Report Type: Spontaneous
  Country: US (occurrence: None)
  Receive Date: 20131119
  Receipt Date: 20131119
  Transmission Date: 20140711
  Serious: No
  Sender: FDA-Public Use
  Company Number: None

PATIENT
  Age: 83 None
  Sex: Male

DRUGS (7)
  1. FINASTERIDE [Suspect]
     Indication: BENIGN PROSTATIC HYPERPLASIA
     Dosage: 90 FOR 3 MOTNHS 1 A DAY MOUTH
     Route: 048
     Dates: start: 1993
  2. FINASTERIDE [Suspect]
     Dosage: 90 FOR 3 MOTNHS 1 A DAY MOUTH
     Route: 048
     Dates: start: 1993
  3. PROSCAR [Concomitant]
  4. FLOMAX [Concomitant]
  5. GARLIC [Concomitant]
  6. VITAMIN D [Concomitant]
  7. BABY ASPIRIN [Concomitant]

REACTIONS (2)
  - Hyperaesthesia [None]
  - Breast neoplasm [None]
